FAERS Safety Report 5953600-1 (Version None)
Quarter: 2008Q4

REPORT INFORMATION
  Report Type: 
  Country: None (occurrence: None)
  Receive Date: 20081114
  Receipt Date: 20081104
  Transmission Date: 20090506
  Serious: Yes (Hospitalization)
  Sender: FDA-Public Use
  Company Number: B0511037B

PATIENT
  Age: 78 Year
  Sex: Female
  Weight: 82 kg

DRUGS (6)
  1. LAPATINIB [Suspect]
     Dosage: 1250MG PER DAY
     Route: 048
     Dates: start: 20071120
  2. CAPECITABINE [Suspect]
     Dosage: 2000MG PER DAY
     Route: 048
     Dates: start: 20071120
  3. CARVEDILOL [Concomitant]
     Dosage: 6.25MG PER DAY
     Route: 048
     Dates: start: 20051201
  4. EFFEXOR [Concomitant]
     Indication: DEPRESSION
     Dosage: 150MG PER DAY
     Route: 048
     Dates: start: 20051201
  5. FRAXODI [Concomitant]
     Indication: HYPERCOAGULATION
     Route: 058
     Dates: start: 20080101
  6. MEDROL [Concomitant]
     Indication: BREAST CANCER
     Dosage: 16MG PER DAY
     Route: 048
     Dates: start: 20071031

REACTIONS (7)
  - AMNESIA [None]
  - ANAEMIA [None]
  - ARTHRALGIA [None]
  - DEHYDRATION [None]
  - DIARRHOEA [None]
  - FALL [None]
  - RENAL FAILURE [None]
